FAERS Safety Report 15744704 (Version 6)
Quarter: 2022Q3

REPORT INFORMATION
  Report Type: Spontaneous
  Country: US (occurrence: US)
  Receive Date: 20181220
  Receipt Date: 20220913
  Transmission Date: 20221026
  Serious: No
  Sender: FDA-Public Use
  Company Number: US-PFIZER INC-2018522643

PATIENT
  Age: 55 Year
  Sex: Female

DRUGS (9)
  1. DOCETAXEL [Suspect]
     Active Substance: DOCETAXEL
     Indication: Triple positive breast cancer
     Dosage: 160 MG, CYCLIC (06 CYCLES, EVERY THREE WEEKS)
     Dates: start: 20150212, end: 20150528
  2. DOCETAXEL [Suspect]
     Active Substance: DOCETAXEL
     Indication: Triple positive breast cancer
     Dosage: 160 MG, CYCLIC (06 CYCLES, EVERY THREE WEEKS)
     Dates: start: 20150212, end: 20150528
  3. TAXOTERE [Suspect]
     Active Substance: DOCETAXEL
     Indication: Triple positive breast cancer
     Dosage: 160 MG, CYCLIC (06 CYCLES, EVERY THREE WEEKS)
     Dates: start: 20150212, end: 20150528
  4. HERCEPTIN [Concomitant]
     Active Substance: TRASTUZUMAB
     Indication: Chemotherapy
     Dosage: 773 MG, UNK
  5. PARAPLATIN [Concomitant]
     Active Substance: CARBOPLATIN
     Indication: Chemotherapy
     Dosage: 720 MG, UNK
  6. PERJETA [Concomitant]
     Active Substance: PERTUZUMAB
     Indication: Chemotherapy
     Dosage: 840 MG, UNK
  7. ANASTROZOLE [Concomitant]
     Active Substance: ANASTROZOLE
     Indication: Hormone therapy
     Dosage: UNK
     Dates: start: 2015, end: 2015
  8. EXEMESTANE [Concomitant]
     Active Substance: EXEMESTANE
     Indication: Hormone therapy
     Dosage: UNK
  9. ACYCLOVIR [Concomitant]
     Active Substance: ACYCLOVIR
     Dosage: UNK
     Dates: start: 20080908

REACTIONS (5)
  - Alopecia [Not Recovered/Not Resolved]
  - Hair texture abnormal [Not Recovered/Not Resolved]
  - Hair disorder [Not Recovered/Not Resolved]
  - Hair colour changes [Not Recovered/Not Resolved]
  - Madarosis [Not Recovered/Not Resolved]

NARRATIVE: CASE EVENT DATE: 20151127
